FAERS Safety Report 15722078 (Version 2)
Quarter: 2019Q2

REPORT INFORMATION
  Report Type: Spontaneous
  Country: US (occurrence: US)
  Receive Date: 20181214
  Receipt Date: 20190603
  Transmission Date: 20190711
  Serious: No
  Sender: FDA-Public Use
  Company Number: US-PFIZER INC-2018515023

PATIENT
  Age: 62 Year
  Sex: Male
  Weight: 95 kg

DRUGS (3)
  1. INSULIN [Concomitant]
     Active Substance: INSULIN NOS
     Indication: GLYCOSYLATED HAEMOGLOBIN
     Dosage: 40 DAILY
  2. LYRICA [Suspect]
     Active Substance: PREGABALIN
     Dosage: 75 MG, 2X/DAY
     Route: 048
  3. INSULIN [Concomitant]
     Active Substance: INSULIN NOS
     Dosage: 25 2X/DAY (INCREASING INSULIN FROM 40 DAILY TO 25 BID)

REACTIONS (4)
  - Back pain [Unknown]
  - Temperature intolerance [Unknown]
  - Fatigue [Unknown]
  - Drug ineffective [Unknown]
